FAERS Safety Report 4779017-3 (Version None)
Quarter: 2005Q3

REPORT INFORMATION
  Report Type: 
  Country: None (occurrence: None)
  Receive Date: 20050923
  Receipt Date: 20050913
  Transmission Date: 20060218
  Serious: Yes (Life-Threatening, Other)
  Sender: FDA-Public Use
  Company Number: 2005128959

PATIENT
  Age: 61 Year
  Sex: Female

DRUGS (10)
  1. NORPACE CR [Suspect]
     Indication: ILL-DEFINED DISORDER
     Dosage: 300 MG (DAILY), ORAL
     Route: 048
     Dates: start: 20050801, end: 20050801
  2. PIMENOL (PIRMENOL HYDROCHLORIDE) [Suspect]
     Indication: ILL-DEFINED DISORDER
     Dosage: ORAL
     Route: 048
     Dates: start: 20050801, end: 20050101
  3. CARNACULIN (PANCREAS EXTRACT) [Suspect]
  4. KETAS (IBUDILAST) [Concomitant]
  5. PAXIL [Concomitant]
  6. MEILAX (ETHYL LOFLAZEPATE) [Concomitant]
  7. ROHYPNOL (FLUNITRAZEPAM) [Concomitant]
  8. DRAMAMINE [Concomitant]
  9. DOMPERIDONE (DOMPERIDONE) [Concomitant]
  10. SEDAPRAN (PRAZEPAM) [Concomitant]

REACTIONS (2)
  - CARDIAC ARREST [None]
  - SYNCOPE [None]
